FAERS Safety Report 8560887-8 (Version None)
Quarter: 2012Q3

REPORT INFORMATION
  Report Type: 
  Country: None (occurrence: None)
  Receive Date: 20120802
  Receipt Date: 20120730
  Transmission Date: 20120928
  Serious: Yes (Other)
  Sender: FDA-Public Use
  Company Number: US-PFIZER INC-2012148312

PATIENT
  Sex: Female
  Weight: 91 kg

DRUGS (14)
  1. LEVOTHYROXINE SODIUM [Suspect]
     Indication: HYPOTHYROIDISM
     Dosage: 50 UG, 1X/DAY
     Route: 048
     Dates: start: 20090101
  2. CALCIUM CARBONATE/ERGOCALCIFEROL [Concomitant]
  3. ALBUTEROL [Concomitant]
     Dosage: UNK
  4. THEOPHYLLINE [Concomitant]
     Dosage: UNK
  5. ZYRTEC [Concomitant]
     Dosage: UNK
  6. CORTEF [Suspect]
     Indication: HYPOPITUITARISM
     Dosage: 20 MG IN MORNING, 5MG AT 2PM
     Route: 048
     Dates: start: 20090101
  7. SYNTHROID [Suspect]
     Indication: HYPOTHYROIDISM
     Dosage: 50 UG, 1X/DAY
     Route: 048
     Dates: start: 20090101
  8. FLUTICASONE PROPIONATE [Concomitant]
     Dosage: UNK
  9. ALPHA LIPOIC ACID [Concomitant]
     Dosage: UNK
  10. IRON [Concomitant]
     Dosage: UNK
  11. COENZYME Q10 [Concomitant]
  12. HYDROCORTISONE [Suspect]
     Indication: HYPOPITUITARISM
     Dosage: 20 MG IN MORNING AND 5MG AT 2PM
     Route: 048
     Dates: start: 20090101
  13. LACTOBACILLUS ACIDOPHILUS [Concomitant]
  14. DIFLUCAN [Concomitant]
     Dosage: UNK

REACTIONS (1)
  - LYME DISEASE [None]
